FAERS Safety Report 24654520 (Version 1)
Quarter: 2024Q4

REPORT INFORMATION
  Report Type: Spontaneous
  Country: US (occurrence: US)
  Receive Date: 20241122
  Receipt Date: 20241122
  Transmission Date: 20250115
  Serious: No
  Sender: MYLAN
  Company Number: US-MYLANLABS-2024M1101805

PATIENT
  Age: 44 Year
  Sex: Male

DRUGS (3)
  1. PROCTOFOAM HC [Suspect]
     Active Substance: HYDROCORTISONE ACETATE\PRAMOXINE HYDROCHLORIDE
     Indication: Haemorrhoids
     Dosage: QD (USED ONCE)
     Route: 065
     Dates: start: 20241108
  2. PROCTOFOAM HC [Suspect]
     Active Substance: HYDROCORTISONE ACETATE\PRAMOXINE HYDROCHLORIDE
     Dosage: QD (USED TWICE)
     Route: 065
     Dates: start: 20241109
  3. PROCTOFOAM HC [Suspect]
     Active Substance: HYDROCORTISONE ACETATE\PRAMOXINE HYDROCHLORIDE
     Dosage: QD (USED ONCE)
     Route: 065
     Dates: start: 20241110

REACTIONS (2)
  - Product packaging quantity issue [Unknown]
  - Off label use [Unknown]

NARRATIVE: CASE EVENT DATE: 20241108
